FAERS Safety Report 10952260 (Version 1)
Quarter: 2015Q1

REPORT INFORMATION
  Report Type: Spontaneous
  Country: US (occurrence: None)
  Receive Date: 20150323
  Receipt Date: 20150323
  Transmission Date: 20150721
  Serious: No
  Sender: FDA-Public Use
  Company Number: VIT-2014-02557

PATIENT
  Age: 67 Year
  Sex: Female
  Weight: 42.5 kg

DRUGS (9)
  1. ACETYLSALICYLIC ACID [Concomitant]
     Active Substance: ASPIRIN
  2. BIFIDOBACTERIUM LACTIS [Concomitant]
  3. CLARITIN (GLICLAZIDE) [Concomitant]
     Active Substance: GLICLAZIDE
  4. CELEXA [Concomitant]
     Active Substance: CITALOPRAM HYDROBROMIDE
  5. VELPHORO [Suspect]
     Active Substance: FERRIC OXYHYDROXIDE
     Indication: HYPERPHOSPHATAEMIA
     Route: 048
     Dates: start: 20131108
  6. ZOCOR [Concomitant]
     Active Substance: SIMVASTATIN
  7. NEPHROVITE (ASCORBIC ACID) [Concomitant]
  8. NASONEX [Concomitant]
     Active Substance: MOMETASONE FUROATE
  9. PRILOSEC (OMEPRAZOLE) [Concomitant]
     Active Substance: OMEPRAZOLE MAGNESIUM

REACTIONS (6)
  - Product taste abnormal [None]
  - Therapeutic response changed [None]
  - Diarrhoea [None]
  - Anxiety [None]
  - Rectal tenesmus [None]
  - Product formulation issue [None]

NARRATIVE: CASE EVENT DATE: 201411
